FAERS Safety Report 6324031-X (Version None)
Quarter: 2009Q3

REPORT INFORMATION
  Report Type: 
  Country: None (occurrence: None)
  Receive Date: 20090824
  Receipt Date: 20090528
  Transmission Date: 20100115
  Serious: No
  Sender: FDA-Public Use
  Company Number: US-ABBOTT-09P-163-0576852-00

PATIENT
  Sex: Female
  Weight: 90.8 kg

DRUGS (4)
  1. NIASPAN [Suspect]
     Indication: ARTERIOSCLEROSIS
     Dates: start: 20090401, end: 20090401
  2. NIASPAN [Suspect]
     Indication: PERIPHERAL ARTERIAL OCCLUSIVE DISEASE
     Dates: end: 20090401
  3. ASPIRIN [Suspect]
     Indication: DRUG USE FOR UNKNOWN INDICATION
  4. ASPIRIN [Suspect]

REACTIONS (2)
  - DRUG DOSE OMISSION [None]
  - DYSPNOEA [None]
